FAERS Safety Report 5592856-4 (Version None)
Quarter: 2008Q1

REPORT INFORMATION
  Report Type: 
  Country: None (occurrence: None)
  Receive Date: 20080116
  Receipt Date: 20080107
  Transmission Date: 20080703
  Serious: Yes (Hospitalization)
  Sender: FDA-Public Use
  Company Number: PHRM2008FR00455

PATIENT
  Age: 46 Year
  Sex: Male

DRUGS (4)
  1. LASIX [Suspect]
     Route: 048
     Dates: start: 20070801, end: 20070918
  2. TAREG [Suspect]
     Indication: HYPERTENSION
     Route: 048
     Dates: start: 20070901, end: 20070918
  3. BEFIZAL [Suspect]
     Route: 048
     Dates: start: 20070801, end: 20070918
  4. COVERSYL [Suspect]
     Route: 048
     Dates: start: 20070801, end: 20070918

REACTIONS (8)
  - ECZEMA [None]
  - HYPERTRIGLYCERIDAEMIA [None]
  - OEDEMA PERIPHERAL [None]
  - PRURITUS [None]
  - RASH ERYTHEMATOUS [None]
  - RASH PAPULAR [None]
  - RASH PUSTULAR [None]
  - TOXIC SKIN ERUPTION [None]
